FAERS Safety Report 7765680-1 (Version None)
Quarter: 2011Q3

REPORT INFORMATION
  Report Type: 
  Country: None (occurrence: None)
  Receive Date: 20110921
  Receipt Date: 20110909
  Transmission Date: 20111222
  Serious: Yes (Life-Threatening, Hospitalization, Disabling)
  Sender: FDA-Public Use
  Company Number: FR-UCBSA-037423

PATIENT
  Sex: Male
  Weight: 63 kg

DRUGS (13)
  1. CIMZIA [Suspect]
     Indication: RHEUMATOID ARTHRITIS
     Route: 058
     Dates: start: 20110501, end: 20110701
  2. FENOFIBRATE [Concomitant]
     Dosage: 200
  3. ENDOTELON [Concomitant]
     Dosage: 150 MG
  4. CELEBREX [Suspect]
     Indication: RHEUMATOID ARTHRITIS
     Dosage: INITIATED BEFORE 2005
     Route: 048
     Dates: end: 20110715
  5. APROVEL [Concomitant]
     Indication: HYPERTENSION
     Route: 048
  6. ACTONEL [Concomitant]
  7. PANTOPRAZOLE [Concomitant]
     Dosage: 40 MG
  8. PREDNISONE [Suspect]
     Indication: RHEUMATOID ARTHRITIS
     Dosage: STARTED BEFORE 2005
     Route: 048
  9. MORPHINE SULFATE [Concomitant]
  10. SERMION [Concomitant]
  11. ISOPTIN SR [Concomitant]
     Indication: HYPERTENSION
     Route: 048
  12. LORAZEPAM [Concomitant]
     Dosage: 2.5 MG
  13. ZOLPIDEM [Concomitant]
     Dosage: 10 MG

REACTIONS (8)
  - INFECTION [None]
  - SEPTIC SHOCK [None]
  - CELLULITIS GANGRENOUS [None]
  - ACUTE RESPIRATORY DISTRESS SYNDROME [None]
  - SEPSIS [None]
  - DISSEMINATED INTRAVASCULAR COAGULATION [None]
  - RENAL FAILURE ACUTE [None]
  - CARDIAC FAILURE [None]
